FAERS Safety Report 23869305 (Version 1)
Quarter: 2024Q2

REPORT INFORMATION
  Report Type: Report from Study
  Country: US (occurrence: US)
  Receive Date: 20240517
  Receipt Date: 20240517
  Transmission Date: 20240716
  Serious: Yes (Death)
  Sender: FDA-Public Use
  Company Number: US-BAYER-2024A072673

PATIENT
  Age: 59 Year
  Sex: Female
  Weight: 63.492 kg

DRUGS (19)
  1. ADEMPAS [Suspect]
     Active Substance: RIOCIGUAT
     Indication: Pulmonary arterial hypertension
     Dosage: UNK
     Dates: start: 20231114
  2. ADEMPAS [Suspect]
     Active Substance: RIOCIGUAT
     Indication: Pulmonary arterial hypertension
     Dosage: 1.0 MG, TID
     Route: 048
  3. UPTRAVI [Concomitant]
     Active Substance: SELEXIPAG
  4. METOPROLOL TARTRATE [Concomitant]
     Active Substance: METOPROLOL TARTRATE
  5. VITAMIN C [Concomitant]
     Active Substance: ASCORBIC ACID
  6. PREGABALIN [Concomitant]
     Active Substance: PREGABALIN
  7. VITAMIN A [Concomitant]
     Active Substance: VITAMIN A
  8. OPSUMIT [Concomitant]
     Active Substance: MACITENTAN
  9. ATORVASTATIN CALCIUM [Concomitant]
     Active Substance: ATORVASTATIN CALCIUM
  10. ALBUTEROL SULFATE [Concomitant]
     Active Substance: ALBUTEROL SULFATE
  11. ASPIRIN [Concomitant]
     Active Substance: ASPIRIN
  12. TRAMADOL HCL [Concomitant]
     Active Substance: TRAMADOL HYDROCHLORIDE
  13. VITAMIN B12 [Concomitant]
     Active Substance: CYANOCOBALAMIN
  14. OXYGEN [Concomitant]
     Active Substance: OXYGEN
  15. AMLODIPINE BESYLATE [Concomitant]
     Active Substance: AMLODIPINE BESYLATE
  16. TRAZODONE HCL [Concomitant]
     Active Substance: TRAZODONE HYDROCHLORIDE
  17. VITAMIN B COMPLEX [Concomitant]
     Active Substance: CYANOCOBALAMIN\DEXPANTHENOL\NIACINAMIDE\PYRIDOXINE HYDROCHLORIDE\RIBOFLAVIN 5^-PHOSPHATE SODIUM\THIA
  18. SYMBICORT [Concomitant]
     Active Substance: BUDESONIDE\FORMOTEROL FUMARATE DIHYDRATE
  19. HYDROCHLOROTHIAZIDE [Concomitant]
     Active Substance: HYDROCHLOROTHIAZIDE

REACTIONS (1)
  - Death [Fatal]

NARRATIVE: CASE EVENT DATE: 20240513
